FAERS Safety Report 14738360 (Version 1)
Quarter: 2018Q2

REPORT INFORMATION
  Report Type: Spontaneous
  Country: US (occurrence: US)
  Receive Date: 20180404
  Receipt Date: 20180404
  Transmission Date: 20180711
  Serious: No
  Sender: FDA-Public Use
  Company Number: None

PATIENT
  Age: 43 Year
  Sex: Female
  Weight: 94.7 kg

DRUGS (6)
  1. METHOTREXATE. [Suspect]
     Active Substance: METHOTREXATE
     Dates: end: 20180327
  2. ONCASPAR [Suspect]
     Active Substance: PEGASPARGASE
     Dosage: 3750 UNIT
     Dates: end: 20180330
  3. CYTARABINE. [Suspect]
     Active Substance: CYTARABINE
     Dates: end: 20180314
  4. DAUNORUBICIN [Suspect]
     Active Substance: DAUNORUBICIN
     Dates: end: 20180328
  5. DEXAMETHASONE. [Suspect]
     Active Substance: DEXAMETHASONE
     Dates: end: 20180401
  6. VINCRISTINE SULFATE. [Suspect]
     Active Substance: VINCRISTINE SULFATE
     Dates: end: 20180328

REACTIONS (2)
  - Headache [None]
  - Blood glucose increased [None]

NARRATIVE: CASE EVENT DATE: 20180401
